FAERS Safety Report 25223862 (Version 1)
Quarter: 2025Q2

REPORT INFORMATION
  Report Type: Spontaneous
  Country: ES (occurrence: ES)
  Receive Date: 20250422
  Receipt Date: 20250422
  Transmission Date: 20250717
  Serious: Yes (Death)
  Sender: RECORDATI
  Company Number: ES-RECORDATI RARE DISEASE INC.-2025002683

PATIENT
  Age: 65 Year
  Sex: Female
  Weight: 55 kg

DRUGS (2)
  1. OSILODROSTAT [Suspect]
     Active Substance: OSILODROSTAT
     Indication: Hyperadrenocorticism
     Dosage: 5 MG, Q12H
     Route: 048
     Dates: start: 202402, end: 202407
  2. OSILODROSTAT [Suspect]
     Active Substance: OSILODROSTAT
     Route: 048
     Dates: start: 202407, end: 202412

REACTIONS (1)
  - Disease progression [Fatal]

NARRATIVE: CASE EVENT DATE: 20240101
